FAERS Safety Report 25138077 (Version 1)
Quarter: 2025Q1

REPORT INFORMATION
  Report Type: Report from Study
  Country: IN (occurrence: IN)
  Receive Date: 20250329
  Receipt Date: 20250329
  Transmission Date: 20250409
  Serious: Yes (Other)
  Sender: NOVARTIS
  Company Number: IN-002147023-NVSC2024IN235827

PATIENT
  Sex: Male

DRUGS (4)
  1. MYFORTIC [Suspect]
     Active Substance: MYCOPHENOLATE SODIUM
     Indication: Renal transplant
     Dosage: 360 MG, TID
     Route: 048
  2. MYFORTIC [Suspect]
     Active Substance: MYCOPHENOLATE SODIUM
     Dosage: 360 MG, QD
     Route: 048
  3. TACROLIMUS [Suspect]
     Active Substance: TACROLIMUS
     Indication: Renal transplant
     Route: 048
  4. TACROLIMUS [Suspect]
     Active Substance: TACROLIMUS
     Route: 048

REACTIONS (9)
  - Type 2 diabetes mellitus [Unknown]
  - Escherichia sepsis [Unknown]
  - Acute kidney injury [Recovered/Resolved]
  - Toxicity to various agents [Unknown]
  - Blood creatine decreased [Unknown]
  - Cough [Unknown]
  - Hypertension [Unknown]
  - Urinary tract infection [Unknown]
  - Off label use [Unknown]
